FAERS Safety Report 9971574 (Version 2)
Quarter: 2014Q1

REPORT INFORMATION
  Report Type: Report from Study
  Country: US (occurrence: US)
  Receive Date: 20140306
  Receipt Date: 20140306
  Transmission Date: 20141002
  Serious: No
  Sender: FDA-Public Use
  Company Number: US-ABBVIE-13P-163-1137173-00

PATIENT
  Age: 29 Year
  Sex: Female

DRUGS (10)
  1. HUMIRA [Suspect]
     Indication: RHEUMATOID ARTHRITIS
     Dates: start: 20130718
  2. CYCLOBENZAPRINE [Concomitant]
     Indication: MUSCLE SPASMS
  3. TRAZODONE [Concomitant]
     Indication: INSOMNIA
  4. OMEPRAZOLE [Concomitant]
     Indication: GASTRIC DISORDER
  5. HYDROCODONE [Concomitant]
     Indication: PAIN
     Dosage: 5/500MG 3 A DAY AS NEEDED
  6. CLARITIN [Concomitant]
     Indication: HYPERSENSITIVITY
  7. CYCLAFEM [Concomitant]
     Indication: CONTRACEPTION
  8. SAVELLA [Concomitant]
     Indication: FIBROMYALGIA
     Dosage: 50MG DAILY
  9. FOLIC ACID [Concomitant]
     Indication: PRODUCT USED FOR UNKNOWN INDICATION
     Dosage: 1MG DAILY
  10. TYLENOL [Concomitant]
     Indication: PRODUCT USED FOR UNKNOWN INDICATION

REACTIONS (8)
  - Feeling hot [Recovered/Resolved]
  - Palpitations [Recovered/Resolved]
  - Injection site pain [Recovered/Resolved]
  - Rash erythematous [Not Recovered/Not Resolved]
  - Injection site induration [Not Recovered/Not Resolved]
  - Injection site bruising [Not Recovered/Not Resolved]
  - Injection site pain [Not Recovered/Not Resolved]
  - Sinusitis [Unknown]
